FAERS Safety Report 9135691 (Version 1)
Quarter: 2013Q1

REPORT INFORMATION
  Report Type: Spontaneous
  Country: US (occurrence: US)
  Receive Date: 20130304
  Receipt Date: 20130304
  Transmission Date: 20140127
  Serious: No
  Sender: FDA-Public Use
  Company Number: US-ENDO PHARMACEUTICALS INC.-OPER20120039

PATIENT
  Sex: Female

DRUGS (5)
  1. OPANA ER [Suspect]
     Indication: PAIN
     Route: 048
     Dates: start: 2011, end: 201112
  2. OPANA ER [Suspect]
     Indication: INSOMNIA
  3. OPANA ER 20MG [Suspect]
     Indication: PAIN
     Route: 048
     Dates: start: 201101, end: 2011
  4. OPANA ER 20MG [Suspect]
     Indication: INSOMNIA
     Route: 048
     Dates: start: 201112
  5. PERCOCET 10/325 1 [Suspect]
     Indication: PAIN
     Dosage: 10/325 MG
     Route: 048

REACTIONS (5)
  - Fall [Recovered/Resolved]
  - Contusion [Unknown]
  - Feeling abnormal [Unknown]
  - Syncope [Unknown]
  - Headache [Unknown]
